FAERS Safety Report 23269806 (Version 1)
Quarter: 2023Q4

REPORT INFORMATION
  Report Type: Spontaneous
  Country: CN (occurrence: CN)
  Receive Date: 20231207
  Receipt Date: 20231207
  Transmission Date: 20240110
  Serious: Yes (Other)
  Sender: FDA-Public Use
  Company Number: CN-ORGANON-O2311CHN003295

PATIENT
  Age: 52 Year
  Sex: Male

DRUGS (1)
  1. DIPROSPAN [Suspect]
     Active Substance: BETAMETHASONE DIPROPIONATE\BETAMETHASONE SODIUM PHOSPHATE
     Indication: Keloid scar
     Dosage: 1ML, QD, INTRAMUSCULAR INJECTION
     Route: 030
     Dates: start: 20231123, end: 20231123

REACTIONS (3)
  - Injection site pain [Recovering/Resolving]
  - Injection site erythema [Unknown]
  - Injection site swelling [Unknown]

NARRATIVE: CASE EVENT DATE: 20231123
